FAERS Safety Report 15691020 (Version 3)
Quarter: 2018Q4

REPORT INFORMATION
  Report Type: Spontaneous
  Country: VN (occurrence: VN)
  Receive Date: 20181205
  Receipt Date: 20181217
  Transmission Date: 20190205
  Serious: Yes (Death)
  Sender: FDA-Public Use
  Company Number: VN-SAKK-2018SA331106AA

PATIENT
  Age: 18 Month
  Sex: Female
  Weight: 8.5 kg

DRUGS (1)
  1. MYOZYME [Suspect]
     Active Substance: ALGLUCOSIDASE ALFA
     Indication: GLYCOGEN STORAGE DISEASE TYPE II
     Dosage: 20 MG/KG, QW
     Route: 041
     Dates: start: 20170713, end: 20181025

REACTIONS (3)
  - Sepsis [Fatal]
  - Nosocomial infection [Fatal]
  - Encephalitis [Fatal]

NARRATIVE: CASE EVENT DATE: 20180710
